FAERS Safety Report 9438224 (Version 1)
Quarter: 2013Q3

REPORT INFORMATION
  Report Type: Spontaneous
  Country: US (occurrence: None)
  Receive Date: 20130802
  Receipt Date: 20130802
  Transmission Date: 20140515
  Serious: No
  Sender: FDA-Public Use
  Company Number: None

PATIENT
  Age: 46 Year
  Sex: Male
  Weight: 86.4 kg

DRUGS (3)
  1. INCIVEK [Suspect]
     Indication: HEPATITIS C
     Dosage: 375 MG  TID  PO
     Route: 048
     Dates: start: 20130712
  2. PEGASYS [Suspect]
     Dosage: 180 MCG  Q WEEK  SUB Q
     Route: 058
  3. RIBASHPERE [Suspect]
     Dosage: 600 MG  BID  PO
     Route: 048

REACTIONS (6)
  - Screaming [None]
  - Anger [None]
  - Dyspnoea [None]
  - Fatigue [None]
  - Fear [None]
  - Anger [None]
